FAERS Safety Report 9356714 (Version 1)
Quarter: 2013Q2

REPORT INFORMATION
  Report Type: Spontaneous
  Country: DE (occurrence: DE)
  Receive Date: 20130619
  Receipt Date: 20130619
  Transmission Date: 20140414
  Serious: Yes (Other)
  Sender: FDA-Public Use
  Company Number: PHHY2013DE043313

PATIENT
  Age: 38 Year
  Sex: Female
  Weight: 76 kg

DRUGS (2)
  1. TASIGNA [Suspect]
     Indication: CHRONIC MYELOID LEUKAEMIA
     Dosage: 200 MG, QD
     Route: 048
     Dates: start: 20120327, end: 20130116
  2. TASIGNA [Suspect]
     Dosage: 200 MG, QD
     Route: 048
     Dates: start: 20130508

REACTIONS (4)
  - Abortion spontaneous [Unknown]
  - Chronic myeloid leukaemia [Unknown]
  - Leukaemia recurrent [Unknown]
  - Maternal exposure before pregnancy [Unknown]
